FAERS Safety Report 10237794 (Version 1)
Quarter: 2014Q2

REPORT INFORMATION
  Report Type: Spontaneous
  Country: US (occurrence: US)
  Receive Date: 20140616
  Receipt Date: 20140616
  Transmission Date: 20141212
  Serious: No
  Sender: FDA-Public Use
  Company Number: US-ASTRAZENECA-2014SE40414

PATIENT
  Age: 62 Year
  Sex: Female
  Weight: 90.7 kg

DRUGS (1)
  1. NEXIUM [Suspect]
     Indication: DIARRHOEA
     Route: 048
     Dates: start: 2008, end: 2011

REACTIONS (6)
  - Dyspepsia [Unknown]
  - Weight increased [Unknown]
  - Flatulence [Unknown]
  - Diarrhoea [Unknown]
  - Intentional product misuse [Unknown]
  - Intentional product misuse [Unknown]
